FAERS Safety Report 5126218-0 (Version None)
Quarter: 2006Q4

REPORT INFORMATION
  Report Type: 
  Country: None (occurrence: None)
  Receive Date: 20061012
  Receipt Date: 20060928
  Transmission Date: 20070319
  Serious: Yes (Hospitalization)
  Sender: FDA-Public Use
  Company Number: FR-BOEHRINGER INGELHEIM PHARMACEUTICALS, INC.-2006-BP-11568YA

PATIENT
  Age: 86 Year
  Sex: Male
  Weight: 167 kg

DRUGS (6)
  1. OMIX L.P. [Suspect]
     Route: 048
  2. GARDENAL [Suspect]
     Route: 048
  3. HEMI-DAONIL [Suspect]
     Route: 048
  4. ASPIRIN [Suspect]
     Route: 048
  5. TENORDATE [Suspect]
     Route: 048
  6. COTAREG [Suspect]
     Route: 048

REACTIONS (3)
  - AGITATION [None]
  - AMNESIA [None]
  - EPILEPSY [None]
